FAERS Safety Report 12397392 (Version 1)
Quarter: 2016Q2

REPORT INFORMATION
  Report Type: Report from Study
  Country: PL (occurrence: PL)
  Receive Date: 20160524
  Receipt Date: 20160524
  Transmission Date: 20160815
  Serious: Yes (Hospitalization)
  Sender: FDA-Public Use
  Company Number: PL-ROCHE-1622878

PATIENT
  Age: 62 Year
  Sex: Female

DRUGS (35)
  1. VALZEK [Concomitant]
     Route: 065
     Dates: start: 20110610
  2. KALII CHLORIDUM [Concomitant]
     Indication: PROPHYLAXIS
     Route: 065
     Dates: start: 20140925, end: 20141002
  3. PERTUZUMAB [Suspect]
     Active Substance: PERTUZUMAB
     Dosage: MAINTENANCE DOSE?DATE OF LAST DOSE OF PERTUZUMAB PRIOR TO SAE: 30/JUN/2015
     Route: 042
     Dates: start: 20140714, end: 20150630
  4. ONDANSETRON [Concomitant]
     Active Substance: ONDANSETRON
     Route: 065
     Dates: start: 20140715, end: 20140715
  5. ONDANSETRON [Concomitant]
     Active Substance: ONDANSETRON
     Route: 065
     Dates: start: 20140926, end: 20140926
  6. RAMIPRIL. [Concomitant]
     Active Substance: RAMIPRIL
     Route: 065
     Dates: start: 20150825, end: 20150825
  7. FLUMYCON [Concomitant]
     Route: 065
     Dates: start: 20140627, end: 20140701
  8. PERTUZUMAB [Suspect]
     Active Substance: PERTUZUMAB
     Indication: HER-2 POSITIVE BREAST CANCER
     Dosage: LOADING DOSE
     Route: 042
     Dates: start: 20140623
  9. DEXAMETHASONE. [Concomitant]
     Active Substance: DEXAMETHASONE
     Route: 065
     Dates: start: 20140812, end: 20140814
  10. ONDANSETRON [Concomitant]
     Active Substance: ONDANSETRON
     Route: 065
     Dates: start: 20141107, end: 20141107
  11. ONDANSETRON [Concomitant]
     Active Substance: ONDANSETRON
     Route: 065
     Dates: start: 20141202, end: 20141202
  12. FUROSEMIDE. [Concomitant]
     Active Substance: FUROSEMIDE
     Route: 065
     Dates: start: 20140927, end: 20141002
  13. MEGALIA [Concomitant]
     Route: 065
     Dates: start: 20150630
  14. RAMIPRIL. [Concomitant]
     Active Substance: RAMIPRIL
     Route: 065
     Dates: start: 20150826
  15. ZARANTA [Concomitant]
     Active Substance: ROSUVASTATIN CALCIUM
     Indication: HYPERLIPIDAEMIA
     Route: 048
     Dates: start: 20110610
  16. DEXAMETHASONE. [Concomitant]
     Active Substance: DEXAMETHASONE
     Route: 065
     Dates: start: 20140904, end: 20140906
  17. DEXAMETHASONE. [Concomitant]
     Active Substance: DEXAMETHASONE
     Route: 065
     Dates: start: 20140925, end: 20140927
  18. ENOXAPARINUM NATRICUM [Concomitant]
     Indication: PROPHYLAXIS
     Route: 065
     Dates: start: 20141101
  19. DOCETAXEL. [Suspect]
     Active Substance: DOCETAXEL
     Indication: HER-2 POSITIVE BREAST CANCER
     Dosage: DATE OF LAST DOSE OF DOCETAXEL PRIOR TO SAE: 2/DEC/2014
     Route: 042
     Dates: start: 20140624
  20. DEXAMETHASONE. [Concomitant]
     Active Substance: DEXAMETHASONE
     Route: 065
     Dates: start: 20140714, end: 20140716
  21. CARBO MEDICINALIS [Concomitant]
     Route: 065
     Dates: start: 20140627, end: 20140701
  22. DEXAMETHASONE. [Concomitant]
     Active Substance: DEXAMETHASONE
     Indication: PROPHYLAXIS
     Route: 065
     Dates: start: 20140623, end: 20140625
  23. DEXAMETHASONE. [Concomitant]
     Active Substance: DEXAMETHASONE
     Route: 048
     Dates: start: 20141016, end: 20141018
  24. DEXAMETHASONE. [Concomitant]
     Active Substance: DEXAMETHASONE
     Route: 065
     Dates: start: 20141201, end: 20141203
  25. ONDANSETRON [Concomitant]
     Active Substance: ONDANSETRON
     Indication: PROPHYLAXIS
     Route: 065
     Dates: start: 20140624, end: 20140624
  26. TRASTUZUMAB [Suspect]
     Active Substance: TRASTUZUMAB
     Dosage: MAINTENANCE DOSE?DATE OF LAST DOSE OF TRASTUZUMAB PRIOR TO SAE: 30/JUN/2015
     Route: 042
     Dates: start: 20140715, end: 20150630
  27. NEBILET [Concomitant]
     Active Substance: NEBIVOLOL
     Indication: HYPERTENSION
     Route: 065
     Dates: start: 20110610
  28. DEXAMETHASONE. [Concomitant]
     Active Substance: DEXAMETHASONE
     Route: 065
     Dates: start: 20141106, end: 20141108
  29. ONDANSETRON [Concomitant]
     Active Substance: ONDANSETRON
     Route: 065
     Dates: start: 20141017, end: 20141017
  30. TRILAC (POLAND) [Concomitant]
     Route: 065
     Dates: start: 20140627, end: 20140701
  31. VALSARTANUM [Concomitant]
     Indication: HYPERTENSION
     Route: 065
     Dates: start: 20110610
  32. TRASTUZUMAB [Suspect]
     Active Substance: TRASTUZUMAB
     Indication: HER-2 POSITIVE BREAST CANCER
     Dosage: LOADING DOSE
     Route: 042
     Dates: start: 20140624
  33. ONDANSETRON [Concomitant]
     Active Substance: ONDANSETRON
     Route: 065
     Dates: start: 20140813, end: 20140813
  34. ONDANSETRON [Concomitant]
     Active Substance: ONDANSETRON
     Route: 065
     Dates: start: 20140905, end: 20140905
  35. HEVIRAN [Concomitant]
     Active Substance: ACYCLOVIR
     Route: 065
     Dates: start: 20150505, end: 20150512

REACTIONS (2)
  - Ejection fraction decreased [Not Recovered/Not Resolved]
  - Small intestine carcinoma [Unknown]

NARRATIVE: CASE EVENT DATE: 20150814
